FAERS Safety Report 5723777-1 (Version None)
Quarter: 2008Q2

REPORT INFORMATION
  Report Type: 
  Country: None (occurrence: None)
  Receive Date: 20080429
  Receipt Date: 20080429
  Transmission Date: 20081010
  Serious: Yes (Death, Hospitalization)
  Sender: FDA-Public Use
  Company Number: None

PATIENT
  Sex: Male
  Weight: 75.2 kg

DRUGS (4)
  1. CYTARABINE [Suspect]
     Dosage: 370 MG
     Dates: end: 20080420
  2. DAUNORUBICIN HCL [Suspect]
     Dosage: 322 MG
     Dates: end: 20080419
  3. ETOPOSIDE [Suspect]
     Dosage: 370 MG
     Dates: end: 20080419
  4. HYDROXYUREA [Concomitant]

REACTIONS (11)
  - BASAL GANGLIA HAEMORRHAGE [None]
  - BLAST CELL CRISIS [None]
  - CONFUSIONAL STATE [None]
  - CONSTIPATION [None]
  - INFLUENZA [None]
  - INTERNATIONAL NORMALISED RATIO INCREASED [None]
  - MENTAL STATUS CHANGES [None]
  - RENAL FAILURE ACUTE [None]
  - TUMOUR LYSIS SYNDROME [None]
  - VISUAL DISTURBANCE [None]
  - VOMITING [None]
